FAERS Safety Report 5529690-7 (Version None)
Quarter: 2007Q4

REPORT INFORMATION
  Report Type: 
  Country: None (occurrence: None)
  Receive Date: 20071129
  Receipt Date: 20071119
  Transmission Date: 20080405
  Serious: Yes (Other)
  Sender: FDA-Public Use
  Company Number: US-PFIZER INC-2007098007

PATIENT
  Age: 78 Year
  Sex: Male
  Weight: 90.7 kg

DRUGS (2)
  1. CAVERJECT [Suspect]
     Indication: ERECTILE DYSFUNCTION
  2. STATINS [Concomitant]

REACTIONS (4)
  - LYMPHOMA [None]
  - PENILE PAIN [None]
  - PYREXIA [None]
  - SCROTAL SWELLING [None]
